FAERS Safety Report 10029240 (Version 1)
Quarter: 2014Q1

REPORT INFORMATION
  Report Type: Report from Study
  Country: BR (occurrence: BR)
  Receive Date: 20140321
  Receipt Date: 20140321
  Transmission Date: 20141002
  Serious: Yes (Other)
  Sender: FDA-Public Use
  Company Number: PHHY2014BR033008

PATIENT
  Sex: Female
  Weight: 69 kg

DRUGS (3)
  1. DIOVAN AMLO [Suspect]
     Indication: HYPERTENSION
     Dosage: 1 DF, UNK
  2. DIOVAN HCT [Suspect]
     Indication: HYPERTENSION
     Dosage: UNK UKN, UNK
  3. GLIFAGE [Concomitant]
     Indication: DIABETES MELLITUS
     Dosage: 2 DF, DAILY

REACTIONS (4)
  - Glaucoma [Unknown]
  - Overweight [Recovering/Resolving]
  - Weight increased [Recovering/Resolving]
  - Anxiety [Unknown]
